FAERS Safety Report 5573720-3 (Version None)
Quarter: 2007Q4

REPORT INFORMATION
  Report Type: 
  Country: None (occurrence: None)
  Receive Date: 20071226
  Receipt Date: 20071218
  Transmission Date: 20080405
  Serious: Yes (Disabling, Other)
  Sender: FDA-Public Use
  Company Number: US-MERCK-0706USA03527

PATIENT
  Age: 57 Year
  Sex: Female

DRUGS (4)
  1. FOSAMAX [Suspect]
     Indication: OSTEOPOROSIS
     Route: 048
     Dates: start: 19950101
  2. HORMONES (UNSPECIFIED) [Concomitant]
     Route: 065
     Dates: start: 19950101
  3. ANTINEOPLASTIC (UNSPECIFIED) [Concomitant]
     Route: 065
     Dates: start: 20070101, end: 20070901
  4. FOSAMAX PLUS D [Suspect]
     Route: 048

REACTIONS (6)
  - CENTRAL NERVOUS SYSTEM LYMPHOMA [None]
  - NEOPLASM MALIGNANT [None]
  - OSTEONECROSIS [None]
  - PAIN IN JAW [None]
  - PANCYTOPENIA [None]
  - TOOTH LOSS [None]
